FAERS Safety Report 5396377-3 (Version None)
Quarter: 2007Q3

REPORT INFORMATION
  Report Type: 
  Country: None (occurrence: None)
  Receive Date: 20070725
  Receipt Date: 20070716
  Transmission Date: 20080115
  Serious: Yes (Life-Threatening, Hospitalization)
  Sender: FDA-Public Use
  Company Number: DE-BAYER-200710820BVD

PATIENT
  Age: 69 Year
  Sex: Male

DRUGS (10)
  1. CIPROFLOXACIN HCL [Suspect]
     Indication: INFLAMMATION
     Route: 048
     Dates: start: 20070523, end: 20070528
  2. APOMORPHINE HYDROCHLORIDE [Suspect]
     Indication: PARKINSONISM
     Route: 058
     Dates: start: 20070510
  3. APOMORPHINE HYDROCHLORIDE [Suspect]
     Route: 058
     Dates: start: 20070608, end: 20070611
  4. PK-MERZ [Concomitant]
     Dates: start: 20060101
  5. STALEVO 100 [Concomitant]
     Dates: start: 20060101
  6. RASAGILINE [Concomitant]
     Dates: start: 20060101
  7. TORSEMIDE [Concomitant]
  8. VITAMIN B-12 [Concomitant]
     Dates: start: 20070523
  9. DIGITOXIN TAB [Concomitant]
  10. LISINOPRIL [Concomitant]

REACTIONS (2)
  - DIARRHOEA [None]
  - THROMBOCYTOPENIA [None]
